FAERS Safety Report 16369209 (Version 1)
Quarter: 2019Q2

REPORT INFORMATION
  Report Type: Report from Study
  Country: US (occurrence: US)
  Receive Date: 20190529
  Receipt Date: 20190529
  Transmission Date: 20190711
  Serious: Yes (Hospitalization)
  Sender: FDA-Public Use
  Company Number: US-EXELIXIS-CABO-19021035

PATIENT
  Age: 67 Year
  Sex: Female

DRUGS (1)
  1. CABOMETYX [Suspect]
     Active Substance: CABOZANTINIB S-MALATE
     Indication: RENAL CANCER
     Dosage: 60 MG, QD (MORNING WITHOUT FOOD)
     Dates: start: 20190417, end: 20190517

REACTIONS (21)
  - Arthralgia [Unknown]
  - Renal impairment [Unknown]
  - Stomatitis [Unknown]
  - Dizziness [Unknown]
  - Weight decreased [Unknown]
  - Blood pressure increased [Unknown]
  - Vomiting [Unknown]
  - Feeling abnormal [Unknown]
  - Agitation [Unknown]
  - Nausea [Recovering/Resolving]
  - Influenza like illness [Unknown]
  - Diarrhoea [Unknown]
  - Dehydration [Unknown]
  - Myalgia [Unknown]
  - Contusion [Unknown]
  - Dyspnoea [Unknown]
  - Dysphonia [Unknown]
  - Taste disorder [Unknown]
  - Fatigue [Unknown]
  - Decreased appetite [Unknown]
  - Gastrointestinal neoplasm [Unknown]

NARRATIVE: CASE EVENT DATE: 201905
